FAERS Safety Report 7112799-4 (Version None)
Quarter: 2010Q4

REPORT INFORMATION
  Report Type: 
  Country: None (occurrence: None)
  Receive Date: 20101119
  Receipt Date: 20101112
  Transmission Date: 20110411
  Serious: Yes (Hospitalization)
  Sender: FDA-Public Use
  Company Number: US-KINGPHARMUSA00001-K201001387

PATIENT
  Sex: Female
  Weight: 54.422 kg

DRUGS (1)
  1. EPIPEN [Suspect]
     Indication: ANAPHYLACTIC REACTION
     Dosage: 0.3 MG, TWICE
     Route: 030
     Dates: start: 20101001, end: 20101001

REACTIONS (4)
  - CONVULSION [None]
  - INJECTION SITE HAEMATOMA [None]
  - INJECTION SITE LACERATION [None]
  - INJECTION SITE PAIN [None]
